FAERS Safety Report 17332799 (Version 6)
Quarter: 2020Q1

REPORT INFORMATION
  Report Type: Spontaneous
  Country: JP (occurrence: JP)
  Receive Date: 20200128
  Receipt Date: 20200320
  Transmission Date: 20200409
  Serious: Yes (Death, Other)
  Sender: FDA-Public Use
  Company Number: JP-ASTRAZENECA-2020SE04828

PATIENT
  Age: 75 Year
  Sex: Male
  Weight: 57 kg

DRUGS (15)
  1. METEBANYL [Concomitant]
     Indication: COUGH
     Dosage: 2 MG, WHEN COUGH WAS SEVERE.
     Dates: start: 20191220, end: 20200106
  2. MAGNESIUM OXIDE. [Concomitant]
     Active Substance: MAGNESIUM OXIDE
     Indication: CONSTIPATION
     Dosage: 330 MG, THREE TIMES A DAY, AFTER EVERY MEAL
     Route: 048
     Dates: start: 20191118, end: 20200110
  3. ARGAMATE [Concomitant]
     Active Substance: CALCIUM POLYSTYRENE SULFONATE
     Indication: BLOOD POTASSIUM INCREASED
     Dosage: 25 G, EVERY DAY, AFTER BREAKFAST
     Route: 048
     Dates: start: 20191217, end: 20200110
  4. LOXOPROFEN NA [Concomitant]
     Active Substance: LOXOPROFEN SODIUM
     Indication: PAIN
     Dosage: 60 MG, THREE TIMES A DAY, AFTER EVERY MEAL
     Route: 048
     Dates: start: 20191202, end: 20200110
  5. DIFLUPREDNATE [Concomitant]
     Active Substance: DIFLUPREDNATE
     Indication: RASH
     Dosage: ONCE OR TWICE DAILY
     Route: 062
     Dates: start: 20191230
  6. AMBROXOL HYDROCHLORIDE L [Concomitant]
     Active Substance: AMBROXOL HYDROCHLORIDE
     Dosage: 1 DF, EVERY DAY, AFTER EVENING MEAL
     Route: 048
  7. BISOPROLOL FUMARATE. [Concomitant]
     Active Substance: BISOPROLOL FUMARATE
     Indication: ARRHYTHMIA
     Dosage: 0.625 MG, TWO TIMES A DAY, AFTER BREAKFAST AND EVENING MEAL
     Route: 048
     Dates: start: 20191218, end: 20200106
  8. REBAMIPIDE [Concomitant]
     Active Substance: REBAMIPIDE
     Dosage: 100 MG , THREE TIMES A DAY AFTER EVERY MEAL, FOR SEVEN DAYS
     Route: 048
     Dates: start: 20200109
  9. BELSOMRA [Concomitant]
     Active Substance: SUVOREXANT
     Indication: INSOMNIA
     Dosage: 20 MG, EVERY DAY, BEFORE SLEEP, FOR SEVEN DAYS.
     Route: 048
     Dates: start: 20200109
  10. TAGRISSO [Suspect]
     Active Substance: OSIMERTINIB
     Indication: NON-SMALL CELL LUNG CANCER
     Route: 048
     Dates: start: 20191223, end: 20200106
  11. BELSOMRA [Concomitant]
     Active Substance: SUVOREXANT
     Indication: INSOMNIA
     Dosage: 20 MG, EVERY DAY, BEFORE SLEEP, IN CASE OF SLEEPLESSNESS
     Route: 048
     Dates: start: 20191118, end: 20200110
  12. L-CARBOCISTEINE [Concomitant]
     Active Substance: CARBOCYSTEINE
     Indication: SPUTUM RETENTION
     Dosage: 500 MG, THREE TIMES A DAY, AFTER EVERY MEAL
     Route: 048
     Dates: start: 20191118, end: 20200110
  13. MUCOSOLVAN [Concomitant]
     Active Substance: AMBROXOL HYDROCHLORIDE
     Indication: SPUTUM RETENTION
     Dosage: 45 MG, EVERY DAY, AFTER EVENING MEAL
     Route: 048
     Dates: start: 20191118, end: 20200110
  14. URSODEOXYCHOLIC ACID [Concomitant]
     Active Substance: URSODIOL
     Indication: HEPATIC ENZYME INCREASED
     Dosage: 50 MG, THREE TIEMS A DAY, AFTER EVERY MEAL
     Route: 048
     Dates: start: 20191214, end: 20200110
  15. HUSCODE [Concomitant]
     Active Substance: CHLORPHENIRAMINE MALEATE\DIHYDROCODEINE PHOSPHATE\METHYLEPHEDRINE HYDROCHLORIDE, DL-
     Indication: COUGH
     Route: 048
     Dates: start: 20191202, end: 20200110

REACTIONS (9)
  - Interstitial lung disease [Fatal]
  - Blood pressure decreased [Not Recovered/Not Resolved]
  - Feeding disorder [Not Recovered/Not Resolved]
  - Pharyngitis [Recovered/Resolved]
  - Lung adenocarcinoma [Fatal]
  - Rash [Recovering/Resolving]
  - Atelectasis [Unknown]
  - Renal impairment [Not Recovered/Not Resolved]
  - Off label use [Unknown]

NARRATIVE: CASE EVENT DATE: 20191230
